FAERS Safety Report 8417016-0 (Version None)
Quarter: 2012Q2

REPORT INFORMATION
  Report Type: 
  Country: None (occurrence: None)
  Receive Date: 20120606
  Receipt Date: 20120531
  Transmission Date: 20120825
  Serious: Yes (Other)
  Sender: FDA-Public Use
  Company Number: US-BAYER-2012-054447

PATIENT
  Age: 42 Year
  Sex: Male
  Weight: 90.703 kg

DRUGS (3)
  1. ALEVE (CAPLET) [Suspect]
     Indication: MIGRAINE
     Dosage: DAILY DOSE 440 MG
     Dates: start: 20100401
  2. EFFEXOR XR [Interacting]
     Indication: DEPRESSION
     Dosage: DAILY DOSE 37.5 MG
     Dates: start: 20100201
  3. MULTI-VITAMINS [Concomitant]

REACTIONS (6)
  - LIP EXFOLIATION [None]
  - HYPERSENSITIVITY [None]
  - PHARYNGEAL OEDEMA [None]
  - SWELLING FACE [None]
  - CHEILITIS [None]
  - SWOLLEN TONGUE [None]
